FAERS Safety Report 12620174 (Version 3)
Quarter: 2016Q3

REPORT INFORMATION
  Report Type: Spontaneous
  Country: US (occurrence: US)
  Receive Date: 20160803
  Receipt Date: 20160922
  Transmission Date: 20161109
  Serious: Yes (Hospitalization, Other)
  Sender: FDA-Public Use
  Company Number: US-SAOL THERAPEUTICS-2016SAO00281

PATIENT
  Age: 43 Year
  Sex: Female
  Weight: 63.95 kg

DRUGS (20)
  1. DILAUDID [Suspect]
     Active Substance: HYDROMORPHONE HYDROCHLORIDE
     Dosage: 2.912 MG, \DAY
     Route: 037
     Dates: end: 20131118
  2. BACLOFEN COMPOUNDED [Suspect]
     Active Substance: BACLOFEN
     Dosage: 0.5758 MG/DAY
     Route: 037
  3. DIAZEPAM. [Suspect]
     Active Substance: DIAZEPAM
  4. VIMPAT [Concomitant]
     Active Substance: LACOSAMIDE
  5. BACLOFEN. [Suspect]
     Active Substance: BACLOFEN
     Indication: PAIN
     Dosage: 0.6559 ?G, \DAY
     Dates: start: 20131118
  6. CLONIDINE. [Suspect]
     Active Substance: CLONIDINE
     Dosage: 0.064 MG, \DAY
     Route: 037
     Dates: end: 20131118
  7. LAMICTAL [Concomitant]
     Active Substance: LAMOTRIGINE
  8. TOPAMAX [Suspect]
     Active Substance: TOPIRAMATE
  9. DILANTIN [Concomitant]
     Active Substance: PHENYTOIN
  10. FENTANYL. [Suspect]
     Active Substance: FENTANYL
     Dosage: 8.199 UNK, UNK
     Dates: start: 20131118
  11. NORCO [Suspect]
     Active Substance: ACETAMINOPHEN\HYDROCODONE BITARTRATE
  12. CYMBALTA [Suspect]
     Active Substance: DULOXETINE HYDROCHLORIDE
  13. FENTANYL. [Suspect]
     Active Substance: FENTANYL
     Dosage: 8.0 MG, \DAY
     Dates: end: 20131118
  14. CLONIDINE. [Suspect]
     Active Substance: CLONIDINE
     Dosage: 0.065 MG, \DAY
     Dates: start: 20131118
  15. ESTRADIOL. [Suspect]
     Active Substance: ESTRADIOL
  16. BACLOFEN. [Suspect]
     Active Substance: BACLOFEN
     Indication: POST LAMINECTOMY SYNDROME
     Dosage: 0.64 MG, \DAY
     Dates: end: 20131118
  17. DILAUDID [Suspect]
     Active Substance: HYDROMORPHONE HYDROCHLORIDE
     Dosage: 2.984 MG, \DAY
     Dates: start: 20131118
  18. ZOFRAN [Suspect]
     Active Substance: ONDANSETRON HYDROCHLORIDE
  19. IMITREX [Suspect]
     Active Substance: SUMATRIPTAN SUCCINATE
  20. MIRTAZAPINE. [Concomitant]
     Active Substance: MIRTAZAPINE

REACTIONS (16)
  - Pain [Recovered/Resolved]
  - Memory impairment [Recovered/Resolved]
  - Medical device discomfort [Not Recovered/Not Resolved]
  - Oedema [Recovered/Resolved]
  - Diarrhoea [Recovered/Resolved]
  - Swelling [Recovered/Resolved]
  - Feeling of body temperature change [Recovered/Resolved]
  - Drug administration error [Recovered/Resolved]
  - Seizure [Recovered/Resolved]
  - Abdominal discomfort [Recovered/Resolved]
  - Device malfunction [None]
  - Drug withdrawal syndrome [Recovered/Resolved]
  - Infusion site mass [Recovered/Resolved]
  - Nausea [Recovered/Resolved]
  - Tinnitus [Unknown]
  - Off label use [Unknown]

NARRATIVE: CASE EVENT DATE: 201311
